FAERS Safety Report 5907670-7 (Version None)
Quarter: 2008Q4

REPORT INFORMATION
  Report Type: 
  Country: None (occurrence: None)
  Receive Date: 20081003
  Receipt Date: 20080930
  Transmission Date: 20090506
  Serious: Yes (Hospitalization, Other)
  Sender: FDA-Public Use
  Company Number: NL-BRISTOL-MYERS SQUIBB COMPANY-14354526

PATIENT
  Age: 50 Year
  Sex: Female
  Weight: 77 kg

DRUGS (2)
  1. APROVEL TABS 150 MG [Suspect]
     Indication: HYPERTENSION
     Route: 048
     Dates: start: 20050101
  2. THYRAX [Suspect]
     Indication: HYPOTHYROIDISM
     Dosage: THYRAX DUOTAB TABLET 0.100MG
     Dates: start: 19890101

REACTIONS (6)
  - ALOPECIA [None]
  - CHILLS [None]
  - DIARRHOEA [None]
  - PERIPHERAL COLDNESS [None]
  - PSORIASIS [None]
  - WEIGHT INCREASED [None]
